FAERS Safety Report 7255197-5 (Version None)
Quarter: 2011Q1

REPORT INFORMATION
  Report Type: 
  Country: None (occurrence: None)
  Receive Date: 20110129
  Receipt Date: 20100223
  Transmission Date: 20110831
  Serious: Yes (Hospitalization)
  Sender: FDA-Public Use
  Company Number: US-ABBOTT-10P-163-0628063-00

PATIENT
  Sex: Female

DRUGS (3)
  1. PREDNISONE [Suspect]
     Indication: PRODUCT USED FOR UNKNOWN INDICATION
  2. HUMIRA [Suspect]
     Indication: CROHN'S DISEASE
     Dates: start: 20100201, end: 20100201
  3. PREDNISONE [Concomitant]

REACTIONS (3)
  - VOMITING [None]
  - DEHYDRATION [None]
  - DIARRHOEA [None]
